FAERS Safety Report 23266296 (Version 1)
Quarter: 2023Q4

REPORT INFORMATION
  Report Type: Spontaneous
  Country: AT (occurrence: None)
  Receive Date: 20231206
  Receipt Date: 20231206
  Transmission Date: 20240109
  Serious: Yes (Other)
  Sender: FDA-Public Use
  Company Number: 2023A269555

PATIENT
  Age: 81 Year
  Sex: Female

DRUGS (8)
  1. DAPAGLIFLOZIN [Suspect]
     Active Substance: DAPAGLIFLOZIN
     Indication: Type 2 diabetes mellitus
     Dosage: FTBL10 MG 1 - 0 - 0
     Route: 048
     Dates: start: 20230418, end: 20230613
  2. ATORVASTATIN CALCIUM\EZETIMIBE [Suspect]
     Active Substance: ATORVASTATIN CALCIUM\EZETIMIBE
     Indication: Low density lipoprotein increased
     Dosage: EZEATO 10MG/10MG 0 - 0 - 1
     Dates: start: 20230510, end: 20230710
  3. CHOLECALCIFEROL [Concomitant]
     Active Substance: CHOLECALCIFEROL
     Dosage: OLEOVIT D3 TR. 15 TR/WEEK
  4. METOPROLOLSUCCINAT STADA [Concomitant]
     Dosage: METOPROLOL SUCC.STADA 47.5MG 1/2 TBL. 1/2 - 0 - 0
  5. METOPROLOLSUCCINAT STADA [Concomitant]
     Dosage: METOPROLOL SUCC.STADA 47.5MG 1/2 TBL. 1/2 - 0 - 0
  6. ASPIRIN [Concomitant]
     Active Substance: ASPIRIN
     Dosage: THROMBO ASS 100MG 1 - 0 - 0
  7. ENALAPRIL MALEATE\LERCANIDIPINE HYDROCHLORIDE [Concomitant]
     Active Substance: ENALAPRIL MALEATE\LERCANIDIPINE HYDROCHLORIDE
     Dosage: ZANIPRIL 20MG/10MG 0 - 0 - 0 - 1
  8. ENALAPRIL\HYDROCHLOROTHIAZIDE [Concomitant]
     Active Substance: ENALAPRIL\HYDROCHLOROTHIAZIDE
     Dosage: CO-RENITEC 20MG/12,5MG 1- 0 - 0 5MG 1- 0 - 0

REACTIONS (1)
  - C-reactive protein increased [Recovered/Resolved]

NARRATIVE: CASE EVENT DATE: 20230606
